FAERS Safety Report 6706422-8 (Version None)
Quarter: 2010Q2

REPORT INFORMATION
  Report Type: 
  Country: None (occurrence: None)
  Receive Date: 20100503
  Receipt Date: 20100423
  Transmission Date: 20101027
  Serious: Yes (Life-Threatening, Hospitalization, Other)
  Sender: FDA-Public Use
  Company Number: PHRM1997FR00516

PATIENT
  Sex: Male
  Weight: 35 kg

DRUGS (2)
  1. TEGRETOL [Suspect]
     Indication: COMPLEX PARTIAL SEIZURES
     Dosage: 20 MG/KG/DAY
     Route: 048
     Dates: start: 19970502, end: 19970505
  2. TEGRETOL [Suspect]
     Dosage: 900 MG
     Route: 048
     Dates: start: 19970506, end: 19970522

REACTIONS (46)
  - AMBLYOPIA [None]
  - ANURIA [None]
  - BLADDER CATHETERISATION [None]
  - BLEPHARITIS [None]
  - BLEPHAROSPASM [None]
  - BLISTER [None]
  - CIRCUMCISION [None]
  - CONJUNCTIVAL HYPERAEMIA [None]
  - CONJUNCTIVITIS [None]
  - DERMATITIS ALLERGIC [None]
  - DIALYSIS [None]
  - DISTICHIASIS [None]
  - EPIGLOTTITIS [None]
  - EYELID FUNCTION DISORDER [None]
  - EYELID OPERATION [None]
  - EYELID PAIN [None]
  - GENITAL LESION [None]
  - GENITAL PAIN [None]
  - HYPERKALAEMIA [None]
  - HYPERTHERMIA [None]
  - IRIS ADHESIONS [None]
  - KERATITIS [None]
  - LACRIMATION INCREASED [None]
  - MOUTH ULCERATION [None]
  - MYCOPLASMA INFECTION [None]
  - NEUROSIS [None]
  - OCULOMUCOCUTANEOUS SYNDROME [None]
  - PHIMOSIS [None]
  - PHOTOPHOBIA [None]
  - PIGMENTATION DISORDER [None]
  - PSEUDOMONAL SEPSIS [None]
  - PYREXIA [None]
  - RASH PAPULAR [None]
  - RENAL FAILURE ACUTE [None]
  - RHINORRHOEA [None]
  - SKIN EXFOLIATION [None]
  - SKIN LESION [None]
  - SYMBLEPHARON [None]
  - TONSILLITIS [None]
  - TOXIC EPIDERMAL NECROLYSIS [None]
  - TRACHEITIS [None]
  - TRACHEOSTOMY [None]
  - URETERIC OBSTRUCTION [None]
  - URINARY TRACT INFECTION [None]
  - VISUAL ACUITY REDUCED [None]
  - VISUAL FIELD DEFECT [None]
